FAERS Safety Report 6462706-2 (Version None)
Quarter: 2009Q4

REPORT INFORMATION
  Report Type: 
  Country: None (occurrence: None)
  Receive Date: 20091130
  Receipt Date: 20091120
  Transmission Date: 20100525
  Serious: Yes (Death)
  Sender: FDA-Public Use
  Company Number: NZ-PURDUE-USA-2009-0041153

PATIENT
  Age: 82 Year
  Sex: Female

DRUGS (1)
  1. OXYCODONE HCL [Suspect]
     Indication: PAIN
     Dosage: 5 MG, TWICE
     Route: 048
     Dates: start: 20091116, end: 20091116

REACTIONS (1)
  - DEATH [None]
